FAERS Safety Report 10020061 (Version 1)
Quarter: 2014Q1

REPORT INFORMATION
  Report Type: Spontaneous
  Country: IN (occurrence: IN)
  Receive Date: 20140318
  Receipt Date: 20140318
  Transmission Date: 20141002
  Serious: Yes (Other)
  Sender: FDA-Public Use
  Company Number: PHHY2014IN031789

PATIENT
  Age: 5 Year
  Sex: Male

DRUGS (2)
  1. CICLOSPORIN [Suspect]
     Indication: NEPHROTIC SYNDROME
     Dosage: 5 MG/KG, PER DAY
     Route: 048
  2. PREDNISOLONE [Concomitant]
     Indication: NEPHROTIC SYNDROME

REACTIONS (3)
  - Gingival hypertrophy [Recovered/Resolved]
  - Lip swelling [Recovered/Resolved]
  - Therapeutic response decreased [Unknown]
